FAERS Safety Report 9229480 (Version 2)
Quarter: 2013Q2

REPORT INFORMATION
  Report Type: Report from Study
  Country: AT (occurrence: AT)
  Receive Date: 20130412
  Receipt Date: 20130531
  Transmission Date: 20140414
  Serious: Yes (Hospitalization)
  Sender: FDA-Public Use
  Company Number: AT-ABBOTT-13P-009-1074047-00

PATIENT
  Age: 72 Year
  Sex: Female
  Weight: 86 kg

DRUGS (48)
  1. ZEMPLAR [Suspect]
     Indication: HYPERPARATHYROIDISM SECONDARY
     Route: 042
     Dates: start: 20120315, end: 20120509
  2. ZEMPLAR [Suspect]
     Route: 042
     Dates: start: 20120621, end: 20120717
  3. ZEMPLAR [Suspect]
     Route: 042
     Dates: start: 20120718, end: 20120807
  4. ZEMPLAR [Suspect]
     Route: 042
     Dates: start: 20120828, end: 20120909
  5. ZEMPLAR [Suspect]
     Route: 042
     Dates: start: 20120922, end: 20121009
  6. ZEMPLAR [Suspect]
     Route: 042
     Dates: start: 20121024, end: 20130124
  7. ZEMPLAR [Suspect]
     Route: 042
     Dates: start: 20130302
  8. ZEMPLAR [Suspect]
     Route: 042
     Dates: start: 20130315
  9. DREISACARB [Suspect]
     Indication: PREMEDICATION
     Dosage: 2-2-2
     Route: 048
     Dates: start: 20120314
  10. ANTIPHOSPHAT GRY [Suspect]
     Indication: PRODUCT USED FOR UNKNOWN INDICATION
     Dosage: 2-2-2
     Route: 042
     Dates: start: 20111109, end: 20120513
  11. RENVELA [Suspect]
     Indication: PRODUCT USED FOR UNKNOWN INDICATION
     Dosage: 1-1-1
     Route: 048
     Dates: start: 20111109, end: 20120510
  12. RENVELA [Suspect]
     Dosage: 1-1-1
     Route: 048
     Dates: start: 20120911, end: 20121011
  13. RENVELA [Suspect]
     Dosage: 2-2-2
     Route: 048
     Dates: start: 20121012
  14. DRELSAVIT [Concomitant]
     Indication: PRODUCT USED FOR UNKNOWN INDICATION
     Dosage: 1-0-0
     Route: 048
     Dates: start: 20111109, end: 20121016
  15. MAGNONORM [Concomitant]
     Indication: PRODUCT USED FOR UNKNOWN INDICATION
     Dosage: ON DEMAND 1-0-0
     Route: 048
     Dates: start: 20111109
  16. PANTOLOC [Concomitant]
     Indication: PRODUCT USED FOR UNKNOWN INDICATION
     Dosage: 1-0-0
     Route: 048
     Dates: start: 20111109
  17. RIVOTRIL [Concomitant]
     Indication: PRODUCT USED FOR UNKNOWN INDICATION
     Dosage: 1-0-1
     Route: 048
     Dates: start: 20111109, end: 20121117
  18. RIVOTRIL [Concomitant]
     Dosage: 1-0-0 ON DAYS WITH HAEMODIALYSIS (=1/D)
     Route: 048
     Dates: start: 20121118
  19. UROSIN (ALLOPURINOL) [Concomitant]
     Indication: PRODUCT USED FOR UNKNOWN INDICATION
     Dosage: 0-1-0
     Route: 048
     Dates: start: 20120221
  20. FOSITENS [Concomitant]
     Indication: PRODUCT USED FOR UNKNOWN INDICATION
     Dosage: 1-0-0
     Route: 048
     Dates: start: 20120301, end: 20120521
  21. FOSITENS [Concomitant]
     Dosage: 1-0-1
     Route: 048
     Dates: start: 20120522, end: 20120927
  22. FOSITENS [Concomitant]
     Dosage: 1-0-0.5
     Route: 048
     Dates: start: 20120928, end: 20121004
  23. FOSITENS [Concomitant]
     Dosage: 1-0-1
     Route: 048
     Dates: start: 20121005, end: 20121020
  24. FOSITENS [Concomitant]
     Dosage: 1-0-0.5
     Route: 048
     Dates: start: 20121021, end: 20121030
  25. FOSITENS [Concomitant]
     Dosage: 1-0-1
     Route: 048
     Dates: start: 20121031
  26. NORVASC [Concomitant]
     Indication: PRODUCT USED FOR UNKNOWN INDICATION
     Dosage: 1-0-1
     Route: 048
     Dates: start: 20120124, end: 20120929
  27. NORVASC [Concomitant]
     Dosage: 1-0-0
     Route: 048
     Dates: start: 20120930, end: 20121105
  28. NORVASC [Concomitant]
     Dosage: 1-0-0
     Route: 048
     Dates: start: 20121106
  29. THROMBO ASS [Concomitant]
     Indication: PRODUCT USED FOR UNKNOWN INDICATION
     Dosage: 0-1-0
     Route: 048
     Dates: start: 20111109, end: 20121105
  30. THROMBO ASS [Concomitant]
     Dosage: 0-1-0
     Route: 048
     Dates: start: 20121106
  31. FERRLECIT [Concomitant]
     Indication: PRODUCT USED FOR UNKNOWN INDICATION
     Dosage: AT HD
     Route: 042
     Dates: start: 20110617, end: 20120508
  32. FERRLECIT [Concomitant]
     Route: 042
     Dates: start: 20120509, end: 20120809
  33. FERRLECIT [Concomitant]
     Route: 042
     Dates: start: 20120809, end: 20130226
  34. FERRLECIT [Concomitant]
     Route: 042
     Dates: start: 20130227
  35. FRAGMIN [Concomitant]
     Indication: PRODUCT USED FOR UNKNOWN INDICATION
     Dosage: AT HD
     Route: 042
     Dates: start: 20110701
  36. NEORECORMON [Concomitant]
     Indication: PRODUCT USED FOR UNKNOWN INDICATION
     Dosage: 12000 IE / WEEK AT HEMODIALYSIS
     Route: 042
     Dates: start: 20100503, end: 20120822
  37. NEORECORMON [Concomitant]
     Dosage: 15000 IE / WEEK AT HEMODIALYSIS
     Route: 042
     Dates: start: 20120823
  38. FOSRENOL [Concomitant]
     Indication: PRODUCT USED FOR UNKNOWN INDICATION
     Dosage: 1-1-1
     Route: 048
     Dates: start: 20120510, end: 20120911
  39. ITERIUM [Concomitant]
     Indication: PRODUCT USED FOR UNKNOWN INDICATION
     Dosage: 1-0-0
     Route: 048
     Dates: start: 20121201
  40. ITERIUM [Concomitant]
     Dosage: 1-0-0
     Route: 048
     Dates: start: 20130219, end: 20130220
  41. ITERIUM [Concomitant]
     Dosage: 1-0-1
     Route: 048
     Dates: start: 20130131, end: 20130218
  42. ITERIUM [Concomitant]
     Dosage: 1-0-1
     Route: 048
     Dates: start: 20130221
  43. OPTINEM [Concomitant]
     Indication: PRODUCT USED FOR UNKNOWN INDICATION
     Dosage: POST HD
     Route: 042
     Dates: start: 20130117, end: 20130129
  44. DALACIN [Concomitant]
     Indication: PRODUCT USED FOR UNKNOWN INDICATION
     Dosage: 1-1-1
     Route: 048
     Dates: start: 20130110, end: 20130116
  45. UNASYN [Concomitant]
     Indication: PRODUCT USED FOR UNKNOWN INDICATION
     Dosage: AFTER HD
     Route: 042
     Dates: start: 20130205, end: 20130207
  46. CEFROM [Concomitant]
     Indication: PRODUCT USED FOR UNKNOWN INDICATION
     Dosage: AFTER HD
     Route: 042
     Dates: start: 20130207, end: 20130221
  47. ZYVOXID [Concomitant]
     Indication: PRODUCT USED FOR UNKNOWN INDICATION
     Dosage: 1-0-1
     Route: 048
     Dates: start: 20130207, end: 20130221
  48. CIPROXIN [Concomitant]
     Indication: PRODUCT USED FOR UNKNOWN INDICATION
     Dosage: 1-0-1
     Route: 048
     Dates: start: 20130308

REACTIONS (10)
  - Inflammation [Recovered/Resolved]
  - Hyperphosphataemia [Recovered/Resolved]
  - Skin ulcer [Not Recovered/Not Resolved]
  - Dermatitis [Not Recovered/Not Resolved]
  - Treatment noncompliance [Unknown]
  - Manipulation [Unknown]
  - Fatigue [Unknown]
  - Pruritus [Unknown]
  - Bone pain [Unknown]
  - Vertigo [Recovered/Resolved]
